FAERS Safety Report 23975941 (Version 1)
Quarter: 2024Q2

REPORT INFORMATION
  Report Type: Spontaneous
  Country: ZA (occurrence: None)
  Receive Date: 20240614
  Receipt Date: 20240614
  Transmission Date: 20240715
  Serious: Yes (Hospitalization)
  Sender: FDA-Public Use
  Company Number: 2024A135041

PATIENT
  Age: 28124 Day
  Sex: Female

DRUGS (3)
  1. BUDESONIDE\FORMOTEROL [Suspect]
     Active Substance: BUDESONIDE\FORMOTEROL
     Dosage: 120 DOSE 160/4.5 MCG UNKNOWN
     Route: 055
  2. ECOTRIN [Concomitant]
     Active Substance: ASPIRIN
     Route: 048
  3. LIPOGEN [Concomitant]
     Route: 048

REACTIONS (1)
  - Uterine cancer [Unknown]
